FAERS Safety Report 4494282-8 (Version None)
Quarter: 2004Q4

REPORT INFORMATION
  Report Type: 
  Country: None (occurrence: None)
  Receive Date: 20041102
  Receipt Date: 20041019
  Transmission Date: 20050328
  Serious: Yes (Other)
  Sender: FDA-Public Use
  Company Number: USA041081542

PATIENT
  Sex: Female
  Weight: 71 kg

DRUGS (6)
  1. PROZAC [Suspect]
     Indication: FATIGUE
  2. SYNTHROID [Concomitant]
     Indication: DEPRESSION
  3. SYNTHROID [Concomitant]
     Indication: MENOPAUSE
  4. ESTRADERM [Concomitant]
  5. PROGESTERONE [Concomitant]
  6. FIORICET [Concomitant]

REACTIONS (5)
  - AGGRESSION [None]
  - AGITATION [None]
  - ANGER [None]
  - HOMICIDAL IDEATION [None]
  - MOOD ALTERED [None]
